FAERS Safety Report 5935299-3 (Version None)
Quarter: 2008Q4

REPORT INFORMATION
  Report Type: 
  Country: None (occurrence: None)
  Receive Date: 20081028
  Receipt Date: 20081013
  Transmission Date: 20090506
  Serious: Yes (Death, Other)
  Sender: FDA-Public Use
  Company Number: 2008002698

PATIENT
  Age: 62 Year
  Sex: Male
  Weight: 62.65 kg

DRUGS (9)
  1. ERLOTINIB (ERLOTINIB) (TABLET) (ERLOTINIB) [Suspect]
     Indication: LUNG ADENOCARCINOMA
     Dosage: (150 MG, QD), ORAL
     Route: 048
     Dates: start: 20080507, end: 20080603
  2. MYSLEE [Concomitant]
  3. DEPAKENE [Concomitant]
  4. GASMOTIN (MOSAPRIDE CITRATE) [Concomitant]
  5. METHYCOBAL (MECOBALAMIN) [Concomitant]
  6. CYTOTEC [Concomitant]
  7. OXYCONTIN [Concomitant]
  8. NAIXAN (NAPROXEN SODIUM) [Concomitant]
  9. GASTROM (ECABET MONOSODIUM) [Concomitant]

REACTIONS (9)
  - DELIRIUM [None]
  - DEPRESSION [None]
  - DIARRHOEA [None]
  - DISEASE PROGRESSION [None]
  - HEPATIC FUNCTION ABNORMAL [None]
  - INTERSTITIAL LUNG DISEASE [None]
  - LUNG ADENOCARCINOMA [None]
  - RASH [None]
  - RESTLESSNESS [None]
